FAERS Safety Report 8849632 (Version 1)
Quarter: 2012Q4

REPORT INFORMATION
  Report Type: Spontaneous
  Country: US (occurrence: None)
  Receive Date: 20121018
  Receipt Date: 20121018
  Transmission Date: 20130627
  Serious: Yes (Life-Threatening, Other)
  Sender: FDA-Public Use
  Company Number: None

PATIENT
  Sex: Female
  Weight: 99.34 kg

DRUGS (4)
  1. FUROSEMIDE [Suspect]
     Indication: EDEMA
     Dosage: 20 MG ONCE DAY po
     Route: 048
     Dates: start: 20121012, end: 20121013
  2. FUROSEMIDE [Suspect]
     Indication: BLOOD PRESSURE HIGH
     Dosage: 20 MG ONCE DAY po
     Route: 048
     Dates: start: 20121012, end: 20121013
  3. FUROSEMIDE [Suspect]
     Indication: SWELLING
     Dosage: 20 MG ONCE DAY po
     Route: 048
     Dates: start: 20121012, end: 20121013
  4. FUROSEMIDE [Suspect]
     Indication: DIABETIC COMPLICATION
     Dosage: 20 MG ONCE DAY po
     Route: 048
     Dates: start: 20121012, end: 20121013

REACTIONS (11)
  - Product quality issue [None]
  - Product substitution issue [None]
  - Drug hypersensitivity [None]
  - Tinnitus [None]
  - Visual impairment [None]
  - Dizziness [None]
  - Balance disorder [None]
  - Hypertension [None]
  - Ocular hyperaemia [None]
  - Fatigue [None]
  - Tremor [None]
